FAERS Safety Report 8824318 (Version 2)
Quarter: 2012Q4

REPORT INFORMATION
  Report Type: 
  Country: NL (occurrence: NL)
  Receive Date: 20121004
  Receipt Date: 20121205
  Transmission Date: 20130627
  Serious: Yes (Death, Hospitalization)
  Sender: FDA-Public Use
  Company Number: NL-GENZYME-CLOF-1001896

PATIENT
  Age: 61 Year
  Sex: Male
  Weight: 96 kg

DRUGS (7)
  1. EVOLTRA [Suspect]
     Indication: ACUTE LEUKAEMIA
     Dosage: 23 mg, UNK
     Route: 042
     Dates: start: 20110510
  2. MITOXANTRONE [Suspect]
     Indication: ACUTE LEUKAEMIA
     Dosage: 23 mg, qdx5
     Route: 042
     Dates: start: 20110719, end: 20110723
  3. ETOPOSIDE [Suspect]
     Indication: ACUTE LEUKAEMIA
     Dosage: 230 mg, qdx5
     Route: 042
     Dates: start: 20110719, end: 20110723
  4. BUSULFAN [Suspect]
     Indication: ACUTE LEUKAEMIA
     Dosage: 308 mg, UNK
     Route: 042
     Dates: start: 20120320
  5. FLUDARABINE [Concomitant]
     Indication: STEM CELL TRANSPLANT
     Dosage: 330 mg, UNK
     Route: 042
     Dates: start: 20120320
  6. ATG [Concomitant]
     Indication: STEM CELL TRANSPLANT
     Dosage: 97 mg, UNK
     Route: 042
     Dates: start: 20120320
  7. ALEMTUZUMAB [Concomitant]
     Indication: STEM CELL TRANSPLANT
     Dosage: 30 mg, UNK
     Route: 042
     Dates: start: 20120320

REACTIONS (3)
  - Cytomegalovirus infection [Fatal]
  - Staphylococcal infection [Recovered/Resolved]
  - Neutropenia [Recovered/Resolved]
